FAERS Safety Report 10080443 (Version 2)
Quarter: 2014Q2

REPORT INFORMATION
  Report Type: Spontaneous
  Country: JP (occurrence: JP)
  Receive Date: 20140416
  Receipt Date: 20140515
  Transmission Date: 20141212
  Serious: Yes (Death, Other)
  Sender: FDA-Public Use
  Company Number: JP-009507513-1404JPN007389

PATIENT
  Age: 49 Year
  Sex: Male

DRUGS (3)
  1. PEGINTRON [Suspect]
     Indication: HEPATITIS C
     Dosage: DAILY DOSE UNKNOWN
     Route: 065
  2. REBETOL [Suspect]
     Indication: HEPATITIS C
     Dosage: DAILY DOSE UNKNOWN
     Route: 048
  3. MYCOPHENOLATE MOFETIL [Suspect]
     Indication: IMMUNOSUPPRESSION
     Dosage: DAILY DOSE UNKNOWN
     Route: 065

REACTIONS (3)
  - Liver transplant rejection [Fatal]
  - Hepatic failure [Fatal]
  - Anaemia [Unknown]
